FAERS Safety Report 6379015-2 (Version None)
Quarter: 2009Q3

REPORT INFORMATION
  Report Type: 
  Country: None (occurrence: None)
  Receive Date: 20090928
  Receipt Date: 20090919
  Transmission Date: 20100115
  Serious: Yes (Hospitalization)
  Sender: FDA-Public Use
  Company Number: PHHY2009BR40146

PATIENT
  Sex: Female

DRUGS (2)
  1. TRILEPTAL [Suspect]
     Dosage: 1 TABLET DAILY
  2. TRILEPTAL [Suspect]
     Dosage: 300 MG, TID

REACTIONS (1)
  - CONVULSION [None]
